FAERS Safety Report 8921186 (Version 3)
Quarter: 2013Q2

REPORT INFORMATION
  Report Type: Spontaneous
  Country: US (occurrence: US)
  Receive Date: 20121122
  Receipt Date: 20130503
  Transmission Date: 20140414
  Serious: No
  Sender: FDA-Public Use
  Company Number: US-009507513-1211USA008326

PATIENT
  Sex: Female

DRUGS (2)
  1. PROVENTIL [Suspect]
     Dosage: 90 MCG 1 STANDARD DOSE OF 6.7
     Route: 055
  2. PROVENTIL [Suspect]
     Dosage: 90 MCG 1 STANDARD DOSE OF 6.7
     Route: 055

REACTIONS (3)
  - Product quality issue [Unknown]
  - Drug dose omission [Unknown]
  - No adverse event [Unknown]
